FAERS Safety Report 16962566 (Version 1)
Quarter: 2019Q4

REPORT INFORMATION
  Report Type: Spontaneous
  Country: US (occurrence: US)
  Receive Date: 20191025
  Receipt Date: 20191025
  Transmission Date: 20200122
  Serious: Yes (Other)
  Sender: FDA-Public Use
  Company Number: None

PATIENT
  Age: 41 Year
  Sex: Male
  Weight: 94.5 kg

DRUGS (9)
  1. DULOXETINE. [Concomitant]
     Active Substance: DULOXETINE
  2. CLONIDINE. [Concomitant]
     Active Substance: CLONIDINE
  3. IBUPROFEN. [Concomitant]
     Active Substance: IBUPROFEN
  4. BAYER ASPIRIN [Concomitant]
     Active Substance: ASPIRIN
  5. HYDROXZINE HCL [Concomitant]
  6. GABAPENTIN. [Concomitant]
     Active Substance: GABAPENTIN
  7. GABAPENTIN 300MG CAPSULES [Suspect]
     Active Substance: GABAPENTIN
     Indication: PAIN
     Dosage: ?          QUANTITY:2 TABLET(S);?
     Route: 048
     Dates: start: 20191016, end: 20191017
  8. HYDROCHLOROTHIAZIDE. [Concomitant]
     Active Substance: HYDROCHLOROTHIAZIDE
  9. METOPROLOL. [Concomitant]
     Active Substance: METOPROLOL

REACTIONS (8)
  - Vision blurred [None]
  - Musculoskeletal disorder [None]
  - Product label issue [None]
  - Fluid overload [None]
  - Fall [None]
  - Product taste abnormal [None]
  - Narcolepsy [None]
  - Anxiety [None]

NARRATIVE: CASE EVENT DATE: 20191016
